FAERS Safety Report 8428268 (Version 4)
Quarter: 2025Q1

REPORT INFORMATION
  Report Type: Spontaneous
  Country: DE (occurrence: DE)
  Receive Date: 20120227
  Receipt Date: 20250221
  Transmission Date: 20250409
  Serious: Yes (Death, Life-Threatening, Hospitalization)
  Sender: JOHNSON AND JOHNSON
  Company Number: DE-JNJFOC-20120210534

PATIENT
  Age: 70 Year
  Sex: Male

DRUGS (19)
  1. RISPERDAL [Suspect]
     Active Substance: RISPERIDONE
     Indication: Product used for unknown indication
     Route: 048
     Dates: end: 20111117
  2. RISPERDAL [Suspect]
     Active Substance: RISPERIDONE
     Dosage: THERAPY START DATE_ 18-NOV-2011
     Route: 048
     Dates: end: 20111121
  3. RISPERDAL [Suspect]
     Active Substance: RISPERIDONE
  4. RISPERDAL [Suspect]
     Active Substance: RISPERIDONE
  5. RISPERDAL [Suspect]
     Active Substance: RISPERIDONE
  6. RISPERDAL [Suspect]
     Active Substance: RISPERIDONE
  7. NALOXONE HYDROCHLORIDE\TILIDINE HYDROCHLORIDE [Suspect]
     Active Substance: NALOXONE HYDROCHLORIDE\TILIDINE HYDROCHLORIDE
     Indication: Product used for unknown indication
     Route: 048
     Dates: end: 20111121
  8. NALOXONE HYDROCHLORIDE\TILIDINE HYDROCHLORIDE [Suspect]
     Active Substance: NALOXONE HYDROCHLORIDE\TILIDINE HYDROCHLORIDE
     Route: 048
  9. AMLODIPINE [Suspect]
     Active Substance: AMLODIPINE BESYLATE
     Indication: Product used for unknown indication
     Route: 048
     Dates: end: 20111121
  10. AMLODIPINE [Suspect]
     Active Substance: AMLODIPINE BESYLATE
     Route: 048
     Dates: end: 20111121
  11. AMLODIPINE [Suspect]
     Active Substance: AMLODIPINE BESYLATE
     Route: 048
     Dates: end: 20111121
  12. PROTHIPENDYL HYDROCHLORIDE [Suspect]
     Active Substance: PROTHIPENDYL HYDROCHLORIDE
     Indication: Product used for unknown indication
     Dosage: THERAPY START DATE_ 20-NOV-2011
     Route: 048
     Dates: end: 20111120
  13. MIRTAZAPINE [Suspect]
     Active Substance: MIRTAZAPINE
     Indication: Product used for unknown indication
     Route: 048
     Dates: end: 20111117
  14. MIRTAZAPINE [Suspect]
     Active Substance: MIRTAZAPINE
     Dosage: THERAPY START DATE_ 18-NOV-2011
     Route: 048
     Dates: end: 20111121
  15. MELPERONE [Interacting]
     Active Substance: MELPERONE
     Indication: Product used for unknown indication
     Route: 048
     Dates: end: 20111117
  16. MELPERONE [Interacting]
     Active Substance: MELPERONE
     Route: 048
     Dates: end: 20111121
  17. PANTOZOL [Concomitant]
     Active Substance: PANTOPRAZOLE SODIUM
     Route: 048
     Dates: start: 20111118, end: 20111121
  18. METFORMIN [Concomitant]
     Active Substance: METFORMIN HYDROCHLORIDE
     Route: 048
     Dates: end: 20111121
  19. IBUPROFEN [Concomitant]
     Active Substance: IBUPROFEN
     Route: 048
     Dates: end: 20111121

REACTIONS (9)
  - Pneumonia [Fatal]
  - Altered state of consciousness [Fatal]
  - Hallucination, visual [Fatal]
  - Increased bronchial secretion [Fatal]
  - Hallucination [Unknown]
  - Acute kidney injury [Unknown]
  - Soliloquy [Unknown]
  - Insomnia [Unknown]
  - Drug interaction [Unknown]

NARRATIVE: CASE EVENT DATE: 20111117
